FAERS Safety Report 7978417-8 (Version None)
Quarter: 2011Q4

REPORT INFORMATION
  Report Type: 
  Country: None (occurrence: None)
  Receive Date: 20111205
  Receipt Date: 20111129
  Transmission Date: 20120403
  Serious: Yes (Hospitalization)
  Sender: FDA-Public Use
  Company Number: 7098720

PATIENT
  Age: 57 Year
  Sex: Female

DRUGS (3)
  1. LEVOTHYROXINE SODIUM [Suspect]
     Indication: HYPOTHYROIDISM
     Dosage: 3/4 TABLET (1 IN 1 D) ORAL
     Route: 048
     Dates: start: 20090101
  2. LEVOAMLODIPINE (AMLODIPINE) [Concomitant]
  3. IODINE-131 (IODINE (131 I)) [Concomitant]

REACTIONS (5)
  - CARDIAC NEUROSIS [None]
  - TACHYCARDIA [None]
  - ARTERIOSCLEROSIS CORONARY ARTERY [None]
  - HEART RATE DECREASED [None]
  - PALPITATIONS [None]
